FAERS Safety Report 7624931-4 (Version None)
Quarter: 2011Q3

REPORT INFORMATION
  Report Type: 
  Country: None (occurrence: None)
  Receive Date: 20110720
  Receipt Date: 20110718
  Transmission Date: 20111222
  Serious: Yes (Hospitalization)
  Sender: FDA-Public Use
  Company Number: US-RB-030292-11

PATIENT
  Age: 43 Year
  Sex: Female

DRUGS (2)
  1. SUBOXONE [Suspect]
     Indication: PAIN
     Route: 065
     Dates: start: 20100101, end: 20110625
  2. SUBOXONE [Suspect]
     Indication: DRUG DEPENDENCE
     Route: 065
     Dates: start: 20100101, end: 20110625

REACTIONS (3)
  - DRUG WITHDRAWAL SYNDROME [None]
  - INTERVERTEBRAL DISC PROTRUSION [None]
  - PAIN [None]
